FAERS Safety Report 9071248 (Version 1)
Quarter: 2013Q1

REPORT INFORMATION
  Report Type: Spontaneous
  Country: US (occurrence: US)
  Receive Date: 20130206
  Receipt Date: 20130206
  Transmission Date: 20140127
  Serious: No
  Sender: FDA-Public Use
  Company Number: US-ALLERGAN-1209730US

PATIENT
  Age: 75 Year
  Sex: Female

DRUGS (5)
  1. RESTASIS? [Suspect]
     Indication: DRY EYE
     Dosage: 2 GTT, BID
     Route: 047
     Dates: start: 201204
  2. MONOPRIL                           /00915301/ [Concomitant]
     Indication: HYPERTENSION
     Dosage: UNK UNK, QD
     Route: 048
  3. VESICARE                           /01735901/ [Concomitant]
     Indication: HYPERTONIC BLADDER
     Dosage: UNK UNK, QD
     Route: 048
  4. PRAVACHOL [Concomitant]
     Indication: BLOOD CHOLESTEROL INCREASED
     Dosage: UNK UNK, QD
     Route: 048
  5. THYROID MEDICATION [Concomitant]
     Indication: HYPOTHYROIDISM
     Dosage: UNK, QD
     Route: 048

REACTIONS (9)
  - Eye disorder [Unknown]
  - Drug hypersensitivity [Not Recovered/Not Resolved]
  - Ocular hyperaemia [Unknown]
  - Eye discharge [Unknown]
  - Lacrimation increased [Unknown]
  - Eye pain [Unknown]
  - Vision blurred [Unknown]
  - Photophobia [Unknown]
  - Nausea [Unknown]
